FAERS Safety Report 10602811 (Version 1)
Quarter: 2014Q4

REPORT INFORMATION
  Report Type: Spontaneous
  Country: FR (occurrence: FR)
  Receive Date: 20141124
  Receipt Date: 20141124
  Transmission Date: 20150529
  Serious: Yes (Hospitalization, Other)
  Sender: FDA-Public Use
  Company Number: FR-PFIZER INC-2014318921

PATIENT
  Age: 66 Year
  Sex: Female

DRUGS (9)
  1. XANAX [Suspect]
     Active Substance: ALPRAZOLAM
     Dosage: 0.5 MG IN THE MORNING, 0.25 MG AT NOON, 0.5 MG IN THE EVENING
     Route: 048
  2. LAROXYL ROCHE [Suspect]
     Active Substance: AMITRIPTYLINE
     Dosage: 100 DF OF 50 MG, SINGLE
     Route: 048
     Dates: start: 20130903, end: 20130903
  3. XANAX [Suspect]
     Active Substance: ALPRAZOLAM
     Dosage: 90 DF OF 0.5 MG, SINGLE
     Route: 048
     Dates: start: 20130903, end: 20130903
  4. KENZEN [Suspect]
     Active Substance: CANDESARTAN
     Dosage: 7 DF OF 16 MG, SINGLE
     Route: 048
     Dates: start: 20130903, end: 20130903
  5. XANAX [Suspect]
     Active Substance: ALPRAZOLAM
     Dosage: 0.5 MG, 3X/DAY
     Route: 048
  6. KENZEN [Suspect]
     Active Substance: CANDESARTAN
     Dosage: 8 MG, 1X/DAY
     Route: 048
  7. TERCIAN [Concomitant]
     Active Substance: CYAMEMAZINE
     Dosage: 25, 1X/DAY
  8. KENZEN [Suspect]
     Active Substance: CANDESARTAN
     Dosage: 16 MG, 1X/DAY
     Route: 048
  9. LAROXYL ROCHE [Suspect]
     Active Substance: AMITRIPTYLINE
     Dosage: 50 MG, 1X/DAY
     Route: 048

REACTIONS (8)
  - Conduction disorder [Recovered/Resolved]
  - Rhabdomyolysis [Unknown]
  - Laryngeal oedema [Recovered/Resolved]
  - Poisoning deliberate [Recovered/Resolved]
  - Coma [Recovered/Resolved]
  - Seizure [Unknown]
  - Pneumonia aspiration [Unknown]
  - Electrocardiogram QT prolonged [Unknown]

NARRATIVE: CASE EVENT DATE: 20130903
